FAERS Safety Report 7554015-5 (Version None)
Quarter: 2011Q2

REPORT INFORMATION
  Report Type: 
  Country: None (occurrence: None)
  Receive Date: 20110614
  Receipt Date: 20110614
  Transmission Date: 20111010
  Serious: Yes (Hospitalization)
  Sender: FDA-Public Use
  Company Number: None

PATIENT
  Age: 61 Year
  Sex: Female
  Weight: 43.9989 kg

DRUGS (1)
  1. XELODA [Suspect]
     Dosage: 1500MG DAILY PO
     Route: 048
     Dates: start: 20110301, end: 20110601

REACTIONS (2)
  - PYREXIA [None]
  - DIARRHOEA [None]
